FAERS Safety Report 15484826 (Version 1)
Quarter: 2018Q4

REPORT INFORMATION
  Report Type: Spontaneous
  Country: US (occurrence: US)
  Receive Date: 20181010
  Receipt Date: 20181010
  Transmission Date: 20190205
  Serious: Yes (Hospitalization, Other)
  Sender: FDA-Public Use
  Company Number: US-COLLEGIUM PHARMACEUTICAL, INC.-2018CGM00309

PATIENT
  Age: 39 Year
  Sex: Female
  Weight: 134.69 kg

DRUGS (17)
  1. BARIATRIC ADVANTAGE MULTIVITAMIN CHEWABLE [Concomitant]
     Dosage: 1 TABLETS, 2X/DAY
  2. FLUOXETINE [Concomitant]
     Active Substance: FLUOXETINE HYDROCHLORIDE
     Dosage: 40 MG, 1X/DAY
  3. TIZANIDINE. [Concomitant]
     Active Substance: TIZANIDINE
     Dosage: 8 MG, 1X/DAY
  4. ENOXAPARIN [Concomitant]
     Active Substance: ENOXAPARIN
     Dosage: 120 MG 2X/DAY OFF AND ON
  5. XARELTO [Concomitant]
     Active Substance: RIVAROXABAN
     Dosage: UNK
     Dates: end: 201807
  6. OXYCODONE HYDROCHLORIDE. [Concomitant]
     Active Substance: OXYCODONE HYDROCHLORIDE
     Dosage: 60 MG, UP TO 6X/DAY BREAKTHROUGH PAIN
  7. OMEPRAZOLE. [Concomitant]
     Active Substance: OMEPRAZOLE
     Dosage: 40 MG, 1X/DAY
     Dates: start: 201712
  8. DICYCLOMINE [Concomitant]
     Active Substance: DICYCLOMINE HYDROCHLORIDE
     Dosage: 20 MG, 4X/DAY AS NEEDED
     Dates: start: 201803
  9. BARIATRIC ADVANTAGE FLORAVANTAGE PROBIOTIC [Concomitant]
     Dosage: 1 TABLETS, 1X/DAY
  10. XTAMPZA ER [Suspect]
     Active Substance: OXYCODONE
     Indication: PAIN
     Dosage: 108 MG, 2X/DAY
     Route: 048
     Dates: start: 20170217
  11. BUPROPION. [Concomitant]
     Active Substance: BUPROPION
     Dosage: 150 MG, 3X/DAY
  12. LORAZEPAM. [Concomitant]
     Active Substance: LORAZEPAM
     Dosage: 2 MG, 2X/DAY
  13. ARIPIPRAZOLE. [Concomitant]
     Active Substance: ARIPIPRAZOLE
     Dosage: 10 MG, 1X/DAY
     Route: 048
  14. METOPROLOL ER [Concomitant]
     Active Substance: METOPROLOL SUCCINATE
     Dosage: 50 MG, 1X/DAY
     Route: 048
  15. AMBIEN [Concomitant]
     Active Substance: ZOLPIDEM TARTRATE
     Dosage: 10 MG, 1X/DAY
  16. ONDANSETRON [Concomitant]
     Active Substance: ONDANSETRON
     Dosage: 8 MG, UP TO 3X/DAY AS NEEDED
  17. INTERMEZZO [Concomitant]
     Active Substance: ZOLPIDEM TARTRATE
     Dosage: AT LEAST 4-5 TIMES A WEEK

REACTIONS (5)
  - Dizziness [Unknown]
  - Deep vein thrombosis [Unknown]
  - Syncope [Unknown]
  - Loss of consciousness [Unknown]
  - Heart rate increased [Unknown]

NARRATIVE: CASE EVENT DATE: 201807
